FAERS Safety Report 18850137 (Version 6)
Quarter: 2021Q1

REPORT INFORMATION
  Report Type: Spontaneous
  Country: US (occurrence: US)
  Receive Date: 20210205
  Receipt Date: 20210317
  Transmission Date: 20210420
  Serious: No
  Sender: FDA-Public Use
  Company Number: US-SUNOVION-2021SUN000187

PATIENT
  Age: 62 Year
  Sex: Male

DRUGS (6)
  1. SINEMET [Suspect]
     Active Substance: CARBIDOPA\LEVODOPA
     Indication: PARKINSON^S DISEASE
     Dosage: UNK
     Route: 065
     Dates: start: 20210111
  2. KYNMOBI [Suspect]
     Active Substance: APOMORPHINE HYDROCHLORIDE
     Indication: PARKINSON^S DISEASE
     Dosage: UNK, UP TO 5 TIMES DAILY
     Route: 060
     Dates: start: 202101
  3. PRILOSEC [Concomitant]
     Active Substance: OMEPRAZOLE MAGNESIUM
     Indication: REFLUX GASTRITIS
     Dosage: UNK
  4. KYNMOBI [Suspect]
     Active Substance: APOMORPHINE HYDROCHLORIDE
     Dosage: UNK, HIGHEST DOSE
     Route: 060
     Dates: start: 20210111
  5. KYNMOBI [Suspect]
     Active Substance: APOMORPHINE HYDROCHLORIDE
     Dosage: UNK
     Route: 060
     Dates: start: 20210111
  6. REQUIP [Suspect]
     Active Substance: ROPINIROLE HYDROCHLORIDE
     Indication: PARKINSON^S DISEASE
     Dosage: UNK
     Route: 065
     Dates: start: 20210111

REACTIONS (9)
  - Musculoskeletal stiffness [Unknown]
  - Fatigue [Recovering/Resolving]
  - Balance disorder [Recovering/Resolving]
  - Tremor [Recovered/Resolved]
  - Nausea [Unknown]
  - Gait disturbance [Recovering/Resolving]
  - Somnolence [Unknown]
  - Thought blocking [Unknown]
  - Deep brain stimulation [Unknown]

NARRATIVE: CASE EVENT DATE: 20210217
